FAERS Safety Report 7384829-6 (Version None)
Quarter: 2011Q1

REPORT INFORMATION
  Report Type: 
  Country: None (occurrence: None)
  Receive Date: 20110330
  Receipt Date: 20110328
  Transmission Date: 20110831
  Serious: Yes (Life-Threatening)
  Sender: FDA-Public Use
  Company Number: JP-ABBOTT-11P-087-0714818-00

PATIENT
  Sex: Male

DRUGS (6)
  1. EPZICOM [Concomitant]
     Indication: HIV INFECTION
     Route: 048
     Dates: start: 20100202
  2. EFAVIRENZ [Suspect]
     Indication: HIV INFECTION
     Dates: start: 20090617, end: 20100126
  3. RALTEGRAVIR POTASSIUM [Concomitant]
     Indication: HIV INFECTION
     Route: 048
     Dates: start: 20100129
  4. ABACAVIR SULFATE [Concomitant]
     Indication: HIV INFECTION
     Route: 048
     Dates: start: 20100127, end: 20100201
  5. KALETRA [Suspect]
     Indication: HIV INFECTION
     Route: 048
     Dates: start: 20090511, end: 20090616
  6. TRUVADA [Concomitant]
     Indication: HIV INFECTION
     Route: 048
     Dates: start: 20090511, end: 20100126

REACTIONS (2)
  - DEPRESSION [None]
  - SUICIDE ATTEMPT [None]
